FAERS Safety Report 12777451 (Version 1)
Quarter: 2016Q3

REPORT INFORMATION
  Report Type: Spontaneous
  Country: US (occurrence: US)
  Receive Date: 20160924
  Receipt Date: 20160924
  Transmission Date: 20161109
  Serious: Yes (Other)
  Sender: FDA-Public Use
  Company Number: US-TEVA-595174USA

PATIENT
  Age: 92 Year
  Sex: Male

DRUGS (2)
  1. CARBAMAZEPINE. [Suspect]
     Active Substance: CARBAMAZEPINE
     Dosage: 600 MILLIGRAM DAILY;
     Route: 065
  2. CARBAMAZEPINE. [Suspect]
     Active Substance: CARBAMAZEPINE
     Dosage: 300 MILLIGRAM DAILY;
     Route: 065
     Dates: start: 20150620

REACTIONS (9)
  - Incontinence [Recovered/Resolved]
  - Hallucination [Unknown]
  - Adverse event [Unknown]
  - Abnormal behaviour [Unknown]
  - Dysphemia [Unknown]
  - Wrong technique in product usage process [Unknown]
  - Aphasia [Recovered/Resolved]
  - Feeling abnormal [Unknown]
  - Aggression [Unknown]
